FAERS Safety Report 13460797 (Version 1)
Quarter: 2017Q2

REPORT INFORMATION
  Report Type: Spontaneous
  Country: US (occurrence: US)
  Receive Date: 20170420
  Receipt Date: 20170420
  Transmission Date: 20170830
  Serious: No
  Sender: FDA-Public Use
  Company Number: US-TEVA-707306USA

PATIENT
  Age: 70 Year
  Sex: Female
  Weight: 63.56 kg

DRUGS (1)
  1. PRAVASTATIN. [Suspect]
     Active Substance: PRAVASTATIN
     Indication: BLOOD CHOLESTEROL INCREASED
     Dates: start: 2015

REACTIONS (3)
  - Dysphagia [Unknown]
  - Product use issue [Unknown]
  - Wrong technique in product usage process [Unknown]
